FAERS Safety Report 9493663 (Version 2)
Quarter: 2013Q4

REPORT INFORMATION
  Report Type: Spontaneous
  Country: FR (occurrence: FR)
  Receive Date: 20130902
  Receipt Date: 20131022
  Transmission Date: 20140711
  Serious: Yes (Death)
  Sender: FDA-Public Use
  Company Number: FR-JNJFOC-20130816218

PATIENT
  Age: 45 Year
  Sex: Male
  Weight: 74 kg

DRUGS (4)
  1. XEPLION [Suspect]
     Indication: ACUTE PSYCHOSIS
     Route: 030
     Dates: start: 20130402
  2. XEPLION [Suspect]
     Indication: SCHIZOPHRENIA
     Route: 030
     Dates: start: 20130402
  3. RISPERDAL CONSTA [Suspect]
     Indication: ACUTE PSYCHOSIS
     Route: 030
     Dates: start: 20130107, end: 20130319
  4. LEVOTHYROX [Concomitant]
     Indication: HYPOTHYROIDISM
     Route: 048

REACTIONS (2)
  - Completed suicide [Fatal]
  - Weight increased [Unknown]
